FAERS Safety Report 5846069-9 (Version None)
Quarter: 2008Q3

REPORT INFORMATION
  Report Type: 
  Country: None (occurrence: None)
  Receive Date: 20080813
  Receipt Date: 20080806
  Transmission Date: 20090109
  Serious: Yes (Other)
  Sender: FDA-Public Use
  Company Number: 2008SP016072

PATIENT
  Age: 28 Year
  Sex: Female

DRUGS (4)
  1. PEG-INTRON [Suspect]
     Indication: HEPATITIS C
     Dates: start: 20080620
  2. REBETOL [Suspect]
     Indication: HEPATITIS C
     Dosage: PO
     Route: 048
     Dates: start: 20080620
  3. IMITREX [Suspect]
  4. EFFEXOR [Suspect]
     Indication: DEPRESSION

REACTIONS (24)
  - CANDIDIASIS [None]
  - CHEST DISCOMFORT [None]
  - CONSTIPATION [None]
  - CRYING [None]
  - DEHYDRATION [None]
  - DENTAL CARIES [None]
  - DEPRESSED MOOD [None]
  - DYSGEUSIA [None]
  - FEELING HOT [None]
  - GINGIVAL INJURY [None]
  - HAEMATEMESIS [None]
  - HOMICIDAL IDEATION [None]
  - HOT FLUSH [None]
  - INSOMNIA [None]
  - LETHARGY [None]
  - MALAISE [None]
  - MIGRAINE [None]
  - MUSCLE SPASMS [None]
  - MUSCULOSKELETAL PAIN [None]
  - NAUSEA [None]
  - NECK PAIN [None]
  - NO THERAPEUTIC RESPONSE [None]
  - SUNBURN [None]
  - VOMITING [None]
